FAERS Safety Report 19511324 (Version 5)
Quarter: 2024Q3

REPORT INFORMATION
  Report Type: Report from Study
  Country: US (occurrence: US)
  Receive Date: 20210709
  Receipt Date: 20240713
  Transmission Date: 20241017
  Serious: Yes (Hospitalization)
  Sender: ROCHE
  Company Number: US-ROCHE-2865331

PATIENT
  Sex: Female

DRUGS (1)
  1. CELLCEPT [Suspect]
     Active Substance: MYCOPHENOLATE MOFETIL
     Indication: Systemic lupus erythematosus
     Dosage: TAKE 1 TABLET BY MOUTH TWO TIMES A DAY
     Route: 048

REACTIONS (3)
  - Fall [Unknown]
  - Foot fracture [Unknown]
  - Off label use [Unknown]
